FAERS Safety Report 8030235-0 (Version None)
Quarter: 2012Q1

REPORT INFORMATION
  Report Type: 
  Country: None (occurrence: None)
  Receive Date: 20120109
  Receipt Date: 20120103
  Transmission Date: 20120608
  Serious: Yes (Hospitalization, Disabling, Other)
  Sender: FDA-Public Use
  Company Number: PHHY2011TW111982

PATIENT
  Sex: Male
  Weight: 49.5 kg

DRUGS (8)
  1. EXJADE [Suspect]
     Dosage: 4 DF, QD
     Route: 048
     Dates: start: 20091214, end: 20111217
  2. RINGER'S [Concomitant]
  3. INSULIN DETEMIR [Concomitant]
     Indication: DIABETES MELLITUS
     Dosage: 14 U, UNK
     Dates: start: 20110727, end: 20111217
  4. METFORMIN HCL [Concomitant]
     Indication: DIABETES MELLITUS
     Dosage: 500MG/TAB 0.5PC
  5. LPR [Concomitant]
     Indication: APLASTIC ANAEMIA
     Dosage: ZU QD X 2 DAY
     Route: 065
  6. INSULIN GLARGINE [Concomitant]
     Indication: DIABETES MELLITUS
     Dosage: 100IU/ML,L0ML/VIAL 8UN HS
     Route: 065
  7. DEXTROSE [Concomitant]
     Dosage: 20 ML, UNK
     Dates: start: 20111218
  8. INSULIN ASPART [Concomitant]
     Indication: DIABETES MELLITUS
     Dosage: PENFILL 100U/M1,3ML/PC 10UN
     Route: 065

REACTIONS (14)
  - PLEURAL EFFUSION [None]
  - HYPOGLYCAEMIC COMA [None]
  - LOSS OF CONSCIOUSNESS [None]
  - HEPATIC FUNCTION ABNORMAL [None]
  - HYPOKALAEMIA [None]
  - PNEUMONIA [None]
  - SOMNOLENCE [None]
  - ALANINE AMINOTRANSFERASE INCREASED [None]
  - PYREXIA [None]
  - LIVER DISORDER [None]
  - ATRIAL FIBRILLATION [None]
  - AGITATION [None]
  - LUNG CONSOLIDATION [None]
  - DECREASED APPETITE [None]
